FAERS Safety Report 9027736 (Version 2)
Quarter: 2013Q1

REPORT INFORMATION
  Report Type: Spontaneous
  Country: CA (occurrence: CA)
  Receive Date: 20130115
  Receipt Date: 20130115
  Transmission Date: 20140127
  Serious: Yes (Disabling, Other)
  Sender: FDA-Public Use
  Company Number: CA-UCBSA-068395

PATIENT
  Sex: Female

DRUGS (5)
  1. VIMPAT [Suspect]
  2. VIMPAT [Suspect]
     Dosage: 250 MG 9AM; 350 MG 9PM FRO SEVERAL WEEKS
     Dates: start: 201210, end: 201210
  3. VIMPAT [Suspect]
  4. TEGRETOL CR [Suspect]
     Indication: EPILEPSY
     Dosage: LONG STAND
  5. FRISIUM [Concomitant]
     Indication: EPILEPSY
     Dosage: 10 MG AM; 20 MG PM :NO OF INTAKES : 2; LONG STAND

REACTIONS (3)
  - Disability [Unknown]
  - Ataxia [Recovered/Resolved]
  - Incorrect dose administered [Recovered/Resolved]
